FAERS Safety Report 4470924-8 (Version None)
Quarter: 2004Q4

REPORT INFORMATION
  Report Type: 
  Country: None (occurrence: None)
  Receive Date: 20041011
  Receipt Date: 20041001
  Transmission Date: 20050328
  Serious: Yes (Hospitalization)
  Sender: FDA-Public Use
  Company Number: PHBS2004IT13150

PATIENT
  Sex: Male

DRUGS (2)
  1. TORECAN [Suspect]
     Indication: VERTIGO
     Dosage: 3 DF/DAY
     Route: 048
     Dates: start: 20040831, end: 20040831
  2. TORECAN [Suspect]
     Dosage: 2 DF/DAY
     Route: 048
     Dates: start: 20040901, end: 20040901

REACTIONS (5)
  - FEAR [None]
  - HYPERPYREXIA [None]
  - HYPERSENSITIVITY [None]
  - SALIVARY HYPERSECRETION [None]
  - TARDIVE DYSKINESIA [None]
